FAERS Safety Report 4568028-9 (Version None)
Quarter: 2005Q1

REPORT INFORMATION
  Report Type: 
  Country: None (occurrence: None)
  Receive Date: 20050128
  Receipt Date: 20050119
  Transmission Date: 20050727
  Serious: Yes (Other)
  Sender: FDA-Public Use
  Company Number: S05-USA-00227-01

PATIENT
  Age: 85 Year
  Sex: Female

DRUGS (6)
  1. NAMENDA [Suspect]
     Indication: DEMENTIA ALZHEIMER'S TYPE
     Dates: start: 20040101, end: 20040101
  2. NAMENDA [Suspect]
     Indication: DEMENTIA ALZHEIMER'S TYPE
  3. REMINYL [Suspect]
     Indication: DEMENTIA ALZHEIMER'S TYPE
     Dates: end: 20040101
  4. REMINYL [Suspect]
     Indication: DEMENTIA ALZHEIMER'S TYPE
  5. THORAZINE [Suspect]
     Indication: AGITATION
     Dates: start: 20040101
  6. THORAZINE (CHLOROPROMAZINE HYDROCHLORIDE) [Concomitant]
     Indication: AGITATION
     Dates: end: 20040101

REACTIONS (2)
  - AGITATION [None]
  - HEPATIC FAILURE [None]
